FAERS Safety Report 11364083 (Version 2)
Quarter: 2020Q2

REPORT INFORMATION
  Report Type: Spontaneous
  Country: DE (occurrence: DE)
  Receive Date: 20150811
  Receipt Date: 20200421
  Transmission Date: 20200713
  Serious: Yes (Congenital Anomaly, Other)
  Sender: FDA-Public Use
  Company Number: DE-AUROBINDO-AUR-APL-2015-06915

PATIENT
  Age: 1 Day
  Sex: Female
  Weight: 2.43 kg

DRUGS (5)
  1. BISOPROLOL 5 MG [Suspect]
     Active Substance: BISOPROLOL
     Indication: CARDIAC DISORDER
     Dosage: 5 MILLIGRAM, DAILY
     Route: 064
     Dates: start: 20140604, end: 20150220
  2. LOSARTAN FILM-COATED TABLETS [Suspect]
     Active Substance: LOSARTAN
     Indication: CARDIAC DISORDER
     Dosage: 10 MILLIGRAM, DAILY
     Route: 064
     Dates: start: 20140604, end: 20140731
  3. BISOPROLOL 5 MG [Suspect]
     Active Substance: BISOPROLOL
     Dosage: 2.5 MILLIGRAM, DAILY
     Route: 064
  4. FOLIC ACID. [Concomitant]
     Active Substance: FOLIC ACID
     Indication: PRODUCT USED FOR UNKNOWN INDICATION
     Dosage: UNK
     Route: 064
     Dates: start: 20140724
  5. RHOPHYLAC [Concomitant]
     Active Substance: HUMAN RHO(D) IMMUNE GLOBULIN
     Indication: PRODUCT USED FOR UNKNOWN INDICATION
     Dosage: UNK
     Route: 064
     Dates: start: 20150107

REACTIONS (7)
  - Small for dates baby [Recovered/Resolved]
  - Respiratory disorder neonatal [Recovered/Resolved]
  - Umbilical hernia [Unknown]
  - Atrial septal defect [Unknown]
  - Talipes [Recovered/Resolved with Sequelae]
  - Patent ductus arteriosus [Unknown]
  - Foetal exposure during pregnancy [Recovered/Resolved]

NARRATIVE: CASE EVENT DATE: 20150220
